FAERS Safety Report 10996760 (Version 1)
Quarter: 2015Q1

REPORT INFORMATION
  Report Type: Spontaneous
  Country: US (occurrence: None)
  Receive Date: 20150331
  Receipt Date: 20150331
  Transmission Date: 20150721
  Serious: Yes (Other)
  Sender: FDA-Public Use
  Company Number: PHEH2014US013725

PATIENT
  Age: 85 Year
  Sex: Male

DRUGS (11)
  1. EXELON PATCH [Suspect]
     Active Substance: RIVASTIGMINE
     Indication: DEMENTIA ALZHEIMER^S TYPE
     Route: 062
  2. WARFARIN [Concomitant]
     Active Substance: WARFARIN
  3. TIMOLOL [Concomitant]
     Active Substance: TIMOLOL
  4. DIGOXIN. [Concomitant]
     Active Substance: DIGOXIN
  5. ALLERGY RELIEF MEDICINE (CHLORPHENAMINE MALEATE, PHENYLPROPANOLAMINE HYDROCHLORIDE) [Concomitant]
  6. PREDNISONE. [Concomitant]
     Active Substance: PREDNISONE
  7. OMEPRAZOLE. [Concomitant]
     Active Substance: OMEPRAZOLE
  8. NAMENDA [Concomitant]
     Active Substance: MEMANTINE HYDROCHLORIDE
  9. CITALOPRAM [Concomitant]
     Active Substance: CITALOPRAM HYDROBROMIDE
  10. DILTIAZEM [Concomitant]
     Active Substance: DILTIAZEM
  11. LIPITOR [Concomitant]
     Active Substance: ATORVASTATIN CALCIUM

REACTIONS (3)
  - Drug ineffective [None]
  - Vascular dementia [None]
  - Application site erythema [None]
